FAERS Safety Report 4969170-0 (Version None)
Quarter: 2006Q2

REPORT INFORMATION
  Report Type: 
  Country: None (occurrence: None)
  Receive Date: 20060411
  Receipt Date: 20051111
  Transmission Date: 20061013
  Serious: Yes (Other)
  Sender: FDA-Public Use
  Company Number: US-BRISTOL-MYERS SQUIBB COMPANY-13177910

PATIENT
  Age: 41 Year
  Sex: Female

DRUGS (8)
  1. CARBOPLATIN [Suspect]
     Indication: OVARIAN CANCER
     Route: 042
     Dates: start: 20051108, end: 20051108
  2. TAXOTERE [Concomitant]
     Indication: OVARIAN CANCER
     Route: 042
     Dates: start: 20051108
  3. BENADRYL [Concomitant]
     Indication: PREMEDICATION
     Route: 042
     Dates: start: 20051108
  4. DECADRON [Concomitant]
     Indication: PREMEDICATION
     Route: 042
     Dates: start: 20051108
  5. DECADRON [Concomitant]
     Route: 048
     Dates: start: 20051108
  6. TAGAMET [Concomitant]
     Indication: PREMEDICATION
     Route: 042
     Dates: start: 20051108
  7. ANZEMET [Concomitant]
     Indication: PREMEDICATION
     Route: 048
     Dates: start: 20051108
  8. ATIVAN [Concomitant]
     Indication: PREMEDICATION
     Route: 048

REACTIONS (4)
  - ABDOMINAL DISCOMFORT [None]
  - FLUSHING [None]
  - HYPOTENSION [None]
  - LOSS OF CONSCIOUSNESS [None]
